FAERS Safety Report 21380975 (Version 1)
Quarter: 2022Q3

REPORT INFORMATION
  Report Type: Spontaneous
  Country: CL (occurrence: CL)
  Receive Date: 20220927
  Receipt Date: 20220927
  Transmission Date: 20221027
  Serious: Yes (Death)
  Sender: FDA-Public Use
  Company Number: CL-PFIZER INC-PV202200071083

PATIENT
  Age: 69 Year
  Sex: Male

DRUGS (1)
  1. SUTENT [Suspect]
     Active Substance: SUNITINIB MALATE
     Indication: Renal cancer
     Dosage: UNK
     Dates: start: 20200623

REACTIONS (1)
  - Death [Fatal]

NARRATIVE: CASE EVENT DATE: 20220401
